FAERS Safety Report 19200587 (Version 2)
Quarter: 2021Q2

REPORT INFORMATION
  Report Type: Spontaneous
  Country: US (occurrence: US)
  Receive Date: 20210430
  Receipt Date: 20210518
  Transmission Date: 20210717
  Serious: No
  Sender: FDA-Public Use
  Company Number: US-GLAXOSMITHKLINE-USCH2021023758

PATIENT
  Age: 70 Year
  Sex: Female

DRUGS (1)
  1. VOLTAREN ARTHRITIS PAIN [Suspect]
     Active Substance: DICLOFENAC SODIUM
     Indication: ARTHRITIS
     Dosage: UNK
     Route: 061
     Dates: start: 20210423, end: 20210424

REACTIONS (8)
  - Swelling [Unknown]
  - Skin burning sensation [Unknown]
  - Frequent bowel movements [Unknown]
  - Pruritus [Recovered/Resolved]
  - Restlessness [Unknown]
  - Pain of skin [Unknown]
  - Rash [Unknown]
  - Faeces discoloured [Unknown]

NARRATIVE: CASE EVENT DATE: 20210424
